FAERS Safety Report 5192222-X (Version None)
Quarter: 2006Q4

REPORT INFORMATION
  Report Type: 
  Country: None (occurrence: None)
  Receive Date: 20061227
  Receipt Date: 20060324
  Transmission Date: 20070319
  Serious: Yes (Other)
  Sender: FDA-Public Use
  Company Number: JP-ROCHE-442401

PATIENT
  Age: 24 Month
  Sex: Female
  Weight: 12 kg

DRUGS (11)
  1. TAMIFLU [Suspect]
     Route: 048
     Dates: start: 20060104, end: 20060104
  2. PRANOPROFEN [Suspect]
     Indication: PYREXIA
     Route: 048
     Dates: start: 20060104, end: 20060104
  3. PERIACTIN [Concomitant]
     Route: 048
     Dates: start: 20060104, end: 20060104
  4. MUCODYNE [Concomitant]
     Route: 048
     Dates: start: 20060104, end: 20060104
  5. CEFZON [Concomitant]
     Route: 048
     Dates: start: 20060104, end: 20060104
  6. ZESULAN [Concomitant]
     Route: 048
     Dates: start: 20060104, end: 20060104
  7. MEPTIN [Concomitant]
     Route: 048
     Dates: start: 20060104, end: 20060104
  8. GASMOTIN [Concomitant]
     Route: 048
     Dates: start: 20060104, end: 20060104
  9. BIOFERMIN R [Concomitant]
     Route: 048
     Dates: start: 20060104, end: 20060104
  10. ASVERIN [Concomitant]
     Route: 048
     Dates: start: 20060104, end: 20060104
  11. ECOLICIN [Concomitant]
     Route: 047
     Dates: start: 20060104, end: 20060104

REACTIONS (8)
  - ACIDOSIS [None]
  - BRAIN OEDEMA [None]
  - CARDIO-RESPIRATORY ARREST [None]
  - COAGULOPATHY [None]
  - ENCEPHALOPATHY [None]
  - EPILEPSY [None]
  - MENTAL RETARDATION SEVERITY UNSPECIFIED [None]
  - QUADRIPARESIS [None]
